FAERS Safety Report 6282235-9 (Version None)
Quarter: 2009Q3

REPORT INFORMATION
  Report Type: 
  Country: None (occurrence: None)
  Receive Date: 20090721
  Receipt Date: 20090721
  Transmission Date: 20100115
  Serious: Yes (Other)
  Sender: FDA-Public Use
  Company Number: None

PATIENT
  Sex: Female

DRUGS (2)
  1. DEPAKOTE ER [Suspect]
     Dosage: 500MG 2XD PO-047
     Route: 048
  2. DIVALPROEX EXTENDED-RELEASE [Suspect]
     Dosage: 500 MG 2XD PO-047
     Route: 048

REACTIONS (2)
  - LETHARGY [None]
  - SOMNOLENCE [None]
